FAERS Safety Report 4275474-X (Version None)
Quarter: 2004Q1

REPORT INFORMATION
  Report Type: 
  Country: None (occurrence: None)
  Receive Date: 20040116
  Receipt Date: 20040112
  Transmission Date: 20041129
  Serious: Yes (Other)
  Sender: FDA-Public Use
  Company Number: CIP03002947

PATIENT
  Age: 68 Year
  Sex: Female

DRUGS (8)
  1. ACTONEL [Suspect]
     Indication: OSTEOPOROSIS
     Dosage: 35 MG ONCE WEEKLY, ORAL
     Route: 048
     Dates: start: 20030801
  2. ESTRADIOL [Concomitant]
  3. MEGESTROL (MEGESTROL) [Concomitant]
  4. EFUDEX (FLUOROURACIL) CREAM [Concomitant]
  5. FORADIL [Concomitant]
  6. HYDROCHLOROTHIAZID [Concomitant]
  7. CALCIUM W/MAGNESIUM [Concomitant]
  8. ZINC (ZINC) [Concomitant]

REACTIONS (12)
  - ABNORMAL SENSATION IN EYE [None]
  - BONE DISORDER [None]
  - CONDITION AGGRAVATED [None]
  - DRUG HYPERSENSITIVITY [None]
  - EYE REDNESS [None]
  - FLATULENCE [None]
  - HEAD INJURY [None]
  - HEADACHE [None]
  - JAUNDICE [None]
  - REACTION TO DRUG EXCIPIENT [None]
  - SWELLING FACE [None]
  - TREATMENT NONCOMPLIANCE [None]
